FAERS Safety Report 7508868-7 (Version None)
Quarter: 2011Q2

REPORT INFORMATION
  Report Type: 
  Country: None (occurrence: None)
  Receive Date: 20110527
  Receipt Date: 20110516
  Transmission Date: 20111010
  Serious: Yes (Hospitalization, Disabling, Other)
  Sender: FDA-Public Use
  Company Number: PHHY2009CA18940

PATIENT
  Sex: Female

DRUGS (14)
  1. SANDOSTATIN LAR [Suspect]
     Indication: NEOPLASM OF THYMUS
     Dosage: 30 MG, QMO
     Route: 030
     Dates: start: 20070712
  2. FLORINEF [Concomitant]
  3. SANDOSTATIN LAR [Suspect]
     Dosage: 30 MG, EVERY 4 WEEKS
     Route: 030
  4. SANDOSTATIN LAR [Suspect]
     Dosage: 30 MG, QMO
     Route: 030
  5. HYDROCORTISONE [Concomitant]
  6. DILTIAZEM [Concomitant]
  7. SANDOSTATIN LAR [Suspect]
     Dosage: 30 MG, QMO
     Route: 030
  8. ATACAND [Concomitant]
  9. CANDESARTAN CILEXETIL [Concomitant]
  10. SUTENT [Concomitant]
     Dosage: 25 MG, UNK
  11. HYDRALAZINE HCL [Concomitant]
     Route: 048
  12. LEVOTHYROXINE SODIUM [Concomitant]
  13. RANITIDINE [Concomitant]
  14. SANDOSTATIN LAR [Suspect]
     Dosage: 30 MG, EVERY 28 DAYS
     Route: 030

REACTIONS (12)
  - HEPATIC LESION [None]
  - NEOPLASM MALIGNANT [None]
  - BLOOD PRESSURE INCREASED [None]
  - HYPOTENSION [None]
  - DYSPNOEA [None]
  - MALAISE [None]
  - METASTASES TO LUNG [None]
  - PRURITUS [None]
  - COUGH [None]
  - PYREXIA [None]
  - URTICARIA [None]
  - FLUSHING [None]
